FAERS Safety Report 16754088 (Version 1)
Quarter: 2019Q3

REPORT INFORMATION
  Report Type: Spontaneous
  Country: US (occurrence: US)
  Receive Date: 20190829
  Receipt Date: 20190829
  Transmission Date: 20191005
  Serious: Yes (Hospitalization, Other)
  Sender: FDA-Public Use
  Company Number: US-UNITED THERAPEUTICS-UNT-2019-013867

PATIENT
  Age: 15 Year
  Sex: Female

DRUGS (2)
  1. REMODULIN [Suspect]
     Active Substance: TREPROSTINIL
     Dosage: 0.095 ?G/KG, CONTINUING
     Route: 041
     Dates: start: 20181016
  2. REMODULIN [Suspect]
     Active Substance: TREPROSTINIL
     Indication: PULMONARY ARTERIAL HYPERTENSION
     Dosage: 6 ML REMODULIN WITH 9 ML DILUENT, CONTINUING
     Route: 041
     Dates: start: 201711, end: 20190820

REACTIONS (3)
  - Staphylococcal bacteraemia [Recovered/Resolved]
  - Vascular device infection [Recovered/Resolved]
  - Jugular vein thrombosis [Unknown]

NARRATIVE: CASE EVENT DATE: 20190808
